FAERS Safety Report 14515746 (Version 1)
Quarter: 2018Q1

REPORT INFORMATION
  Report Type: Spontaneous
  Country: US (occurrence: US)
  Receive Date: 20180211
  Receipt Date: 20180211
  Transmission Date: 20180509
  Serious: No
  Sender: FDA-Public Use
  Company Number: US-ASTRAZENECA-2018SE15165

PATIENT
  Sex: Female

DRUGS (1)
  1. IMFINZI [Suspect]
     Active Substance: DURVALUMAB
     Indication: NON-SMALL CELL LUNG CANCER
     Route: 042

REACTIONS (5)
  - Tri-iodothyronine decreased [Unknown]
  - Chronic obstructive pulmonary disease [Unknown]
  - Blood thyroid stimulating hormone increased [Unknown]
  - Off label use [Unknown]
  - Product use in unapproved indication [Unknown]
